FAERS Safety Report 8537172-3 (Version None)
Quarter: 2012Q3

REPORT INFORMATION
  Report Type: 
  Country: None (occurrence: None)
  Receive Date: 20120725
  Receipt Date: 20120717
  Transmission Date: 20120928
  Serious: Yes (Hospitalization)
  Sender: FDA-Public Use
  Company Number: US-BRISTOL-MYERS SQUIBB COMPANY-16775082

PATIENT
  Age: 63 Year
  Sex: Female
  Weight: 95 kg

DRUGS (12)
  1. ALLEGRA [Interacting]
     Indication: HYPERSENSITIVITY
  2. LYRICA [Interacting]
     Indication: FIBROMYALGIA
     Dosage: CAPSULE,DOSE REDUCED TO 75MG BID
     Route: 048
     Dates: start: 20110101
  3. VITAMIN D [Interacting]
     Indication: VITAMIN D DEFICIENCY
  4. METHADONE HYDROCHLORIDE [Interacting]
     Indication: BACK DISORDER
     Dosage: DOSE REDUCED TO BID
  5. ASPIRIN [Interacting]
     Indication: HYPERTENSION
  6. ABILIFY [Interacting]
     Indication: DEPRESSION
     Dosage: 1 DF: SPLITTING 15MG TAB
     Route: 048
  7. OSTEO BI-FLEX [Interacting]
     Indication: BACK PAIN
  8. TAMSULOSIN HCL [Interacting]
     Indication: BLADDER OBSTRUCTION
     Dosage: CAPSULE
     Route: 048
  9. OMEPRAZOLE [Interacting]
     Indication: GASTROOESOPHAGEAL REFLUX DISEASE
  10. ATORVASTATIN [Interacting]
     Indication: BLOOD CHOLESTEROL INCREASED
  11. LISINOPRIL [Suspect]
     Indication: HYPERTENSION
  12. BISACODYL [Interacting]
     Indication: IRRITABLE BOWEL SYNDROME

REACTIONS (2)
  - DRUG INTERACTION [None]
  - DRUG ADMINISTRATION ERROR [None]
